FAERS Safety Report 5869620-1 (Version None)
Quarter: 2008Q3

REPORT INFORMATION
  Report Type: 
  Country: None (occurrence: None)
  Receive Date: 20080904
  Receipt Date: 20080428
  Transmission Date: 20090109
  Serious: No
  Sender: FDA-Public Use
  Company Number: US-KINGPHARMUSA00001-K200800495

PATIENT

DRUGS (3)
  1. CYTOMEL [Suspect]
     Indication: AUTOIMMUNE THYROIDITIS
     Dosage: 5 MCG, QD
     Route: 048
  2. UNITHROID [Concomitant]
     Indication: HYPOTHYROIDISM
     Dosage: .075, QD
  3. ESTRADIOL [Concomitant]

REACTIONS (2)
  - FATIGUE [None]
  - SENSATION OF FOREIGN BODY [None]
